FAERS Safety Report 5253002-X (Version None)
Quarter: 2007Q1

REPORT INFORMATION
  Report Type: 
  Country: None (occurrence: None)
  Receive Date: 20070227
  Receipt Date: 20070212
  Transmission Date: 20070707
  Serious: Yes (Life-Threatening, Hospitalization, Other)
  Sender: FDA-Public Use
  Company Number: GXKR2007GB01660

PATIENT
  Age: 61 Year
  Sex: Male

DRUGS (3)
  1. ASPIRIN [Suspect]
     Indication: MYOCARDIAL INFARCTION
  2. ENOXAPARIN (ENOXAPARIN, HEPARIN-FRACTION) [Suspect]
     Indication: MYOCARDIAL INFARCTION
  3. TENECTEPLASE (TENECTEPLASE) [Suspect]
     Indication: THROMBOLYSIS

REACTIONS (8)
  - ACUTE RESPIRATORY DISTRESS SYNDROME [None]
  - ASPIRATION [None]
  - CEREBRAL HAEMATOMA [None]
  - CONVULSION [None]
  - INTRACRANIAL PRESSURE INCREASED [None]
  - POLYNEUROPATHY [None]
  - SEPTIC SHOCK [None]
  - SURGICAL PROCEDURE REPEATED [None]
